FAERS Safety Report 7641342-6 (Version None)
Quarter: 2011Q3

REPORT INFORMATION
  Report Type: 
  Country: None (occurrence: None)
  Receive Date: 20110728
  Receipt Date: 20110718
  Transmission Date: 20111222
  Serious: Yes (Death)
  Sender: FDA-Public Use
  Company Number: ZA-SANOFI-AVENTIS-2011SA045844

PATIENT
  Age: 57 Year
  Sex: Male
  Weight: 115 kg

DRUGS (2)
  1. DOCETAXEL [Suspect]
     Indication: PROSTATE CANCER
     Route: 042
     Dates: start: 20110629, end: 20110629
  2. GRANOCYTE [Suspect]
     Indication: PROPHYLAXIS
     Dosage: DOSE:33.6 MILLIUNIT(S)
     Route: 058
     Dates: start: 20110630, end: 20110704

REACTIONS (1)
  - HAEMORRHAGE INTRACRANIAL [None]
